FAERS Safety Report 5263615-7 (Version None)
Quarter: 2007Q1

REPORT INFORMATION
  Report Type: 
  Country: None (occurrence: None)
  Receive Date: 20070312
  Receipt Date: 20070312
  Transmission Date: 20070707
  Serious: No
  Sender: FDA-Public Use
  Company Number: None

PATIENT

DRUGS (1)
  1. PHENYTOIN SODIUM [Suspect]
     Dosage: INJECTABLE  VIAL

REACTIONS (3)
  - MALAISE [None]
  - MEDICATION ERROR [None]
  - OVERDOSE [None]
